FAERS Safety Report 5312848-X (Version None)
Quarter: 2007Q2

REPORT INFORMATION
  Report Type: 
  Country: None (occurrence: None)
  Receive Date: 20070430
  Receipt Date: 20070419
  Transmission Date: 20071010
  Serious: Yes (Other)
  Sender: FDA-Public Use
  Company Number: US-PFIZER INC-2007031947

PATIENT
  Sex: Female
  Weight: 61.363 kg

DRUGS (4)
  1. ALDACTONE [Suspect]
     Indication: CARDIAC FAILURE CONGESTIVE
     Dates: start: 20061101, end: 20070301
  2. METOPROLOL SUCCINATE [Suspect]
  3. LASIX [Suspect]
  4. FENTANYL [Concomitant]

REACTIONS (3)
  - HYPOTENSION [None]
  - OEDEMA PERIPHERAL [None]
  - TACHYCARDIA [None]
